FAERS Safety Report 11338736 (Version 1)
Quarter: 2015Q3

REPORT INFORMATION
  Report Type: Spontaneous
  Country: US (occurrence: US)
  Receive Date: 20150803
  Receipt Date: 20150803
  Transmission Date: 20151125
  Serious: No
  Sender: FDA-Public Use
  Company Number: US-ELI_LILLY_AND_COMPANY-US200805000973

PATIENT
  Age: 11 Year
  Sex: Male
  Weight: 35.6 kg

DRUGS (1)
  1. STRATTERA [Suspect]
     Active Substance: ATOMOXETINE HYDROCHLORIDE
     Indication: ATTENTION DEFICIT/HYPERACTIVITY DISORDER
     Dosage: 35 MG, DAILY (1/D)
     Dates: start: 20080418, end: 20080425

REACTIONS (5)
  - Screaming [Unknown]
  - Agitation [Unknown]
  - Crying [Unknown]
  - Skin lesion [Unknown]
  - Rash generalised [Recovered/Resolved]

NARRATIVE: CASE EVENT DATE: 200804
